FAERS Safety Report 19054312 (Version 1)
Quarter: 2021Q1

REPORT INFORMATION
  Report Type: Spontaneous
  Country: PY (occurrence: PY)
  Receive Date: 20210325
  Receipt Date: 20210325
  Transmission Date: 20210420
  Serious: Yes (Hospitalization, Other)
  Sender: FDA-Public Use
  Company Number: PY-ROCHE-2791786

PATIENT
  Age: 60 Year
  Sex: Female

DRUGS (11)
  1. TRASTUZUMAB. [Suspect]
     Active Substance: TRASTUZUMAB
     Indication: BREAST CANCER
     Dosage: DOSE WAS NOT REPORTED
     Route: 065
     Dates: start: 201608, end: 201710
  2. TRASTUZUMAB EMTANSINE [Suspect]
     Active Substance: ADO-TRASTUZUMAB EMTANSINE
     Indication: BREAST CANCER
     Dosage: DOSE WAS NOT REPORTED
     Route: 065
     Dates: start: 202005, end: 20201130
  3. ZOLEDRONIC ACID [Concomitant]
     Active Substance: ZOLEDRONIC ACID
     Indication: BREAST CANCER
     Dosage: DOSE AND FREQUENCY WERE NOT REPORTED
     Dates: end: 202004
  4. DOXORUBICIN [Concomitant]
     Active Substance: DOXORUBICIN
     Indication: BREAST CANCER
     Dosage: DOSE WAS NOT REPORTED
     Dates: start: 201505, end: 201510
  5. DOCETAXEL. [Concomitant]
     Active Substance: DOCETAXEL
     Indication: BREAST CANCER
     Dosage: DOSE WAS NOT REPORTED
     Dates: start: 201904, end: 201907
  6. CARBOPLATIN. [Concomitant]
     Active Substance: CARBOPLATIN
     Indication: BREAST CANCER
     Dosage: DOSE WAS NOT REPORTED
     Dates: start: 201904, end: 201907
  7. CYCLOPHOSPHAMIDE. [Concomitant]
     Active Substance: CYCLOPHOSPHAMIDE
     Indication: BREAST CANCER
     Dosage: DOSE WAS NOT REPORTED
     Dates: start: 201505, end: 201510
  8. PACLITAXEL. [Concomitant]
     Active Substance: PACLITAXEL
     Indication: BREAST CANCER
     Dosage: DOSE WAS NOT REPORTED
     Dates: start: 201505, end: 201510
  9. FILGRASTIM [Concomitant]
     Active Substance: FILGRASTIM
     Indication: BREAST CANCER
     Dosage: DOSE WAS NOT REPORTED
     Dates: start: 201505, end: 201510
  10. CAPECITABINE. [Suspect]
     Active Substance: CAPECITABINE
     Indication: BREAST CANCER
     Dosage: DOSE AND FREQUENCY WERE NOT REPORTED
     Route: 048
     Dates: start: 201908, end: 202002
  11. ANASTROZOLE. [Concomitant]
     Active Substance: ANASTROZOLE
     Indication: BREAST CANCER
     Dates: end: 201901

REACTIONS (8)
  - Metastases to bone [Unknown]
  - Pneumonia bacterial [Unknown]
  - Effusion [Unknown]
  - Metastases to pleura [Unknown]
  - Metastases to liver [Unknown]
  - Metastases to the mediastinum [Unknown]
  - Cardiotoxicity [Unknown]
  - Metastases to heart [Unknown]

NARRATIVE: CASE EVENT DATE: 20210119
